FAERS Safety Report 23864512 (Version 2)
Quarter: 2024Q2

REPORT INFORMATION
  Report Type: Spontaneous
  Country: US (occurrence: US)
  Receive Date: 20240516
  Receipt Date: 20240531
  Transmission Date: 20240716
  Serious: No
  Sender: FDA-Public Use
  Company Number: US-SA-SAC20240510001125

PATIENT
  Age: 42 Year
  Sex: Male

DRUGS (4)
  1. TZIELD [Suspect]
     Active Substance: TEPLIZUMAB-MZWV
     Indication: Diabetes mellitus
     Dosage: UNK
     Route: 041
     Dates: start: 20240429, end: 20240502
  2. TZIELD [Suspect]
     Active Substance: TEPLIZUMAB-MZWV
     Dosage: 2100 UG, 1X
     Route: 041
     Dates: start: 20240503, end: 20240503
  3. TZIELD [Suspect]
     Active Substance: TEPLIZUMAB-MZWV
     Dosage: UNK
     Route: 041
     Dates: start: 20240504, end: 20240506
  4. TZIELD [Suspect]
     Active Substance: TEPLIZUMAB-MZWV
     Dosage: 2100 UG, 1X
     Route: 041
     Dates: start: 20240507

REACTIONS (2)
  - Gastrointestinal disorder [Unknown]
  - Rash [Unknown]

NARRATIVE: CASE EVENT DATE: 20240503
